FAERS Safety Report 9321505 (Version 5)
Quarter: 2014Q1

REPORT INFORMATION
  Report Type: Report from Study
  Country: US (occurrence: US)
  Receive Date: 20130531
  Receipt Date: 20140303
  Transmission Date: 20141002
  Serious: Yes (Hospitalization)
  Sender: FDA-Public Use
  Company Number: US-US-EMD SERONO, INC.-7213819

PATIENT
  Age: 42 Year
  Sex: Female

DRUGS (4)
  1. REBIF [Suspect]
     Indication: MULTIPLE SCLEROSIS
     Route: 058
     Dates: start: 20120615
  2. VITAMIN B12                        /00056201/ [Concomitant]
     Indication: COMPLEX REGIONAL PAIN SYNDROME
  3. IRON [Concomitant]
     Indication: COMPLEX REGIONAL PAIN SYNDROME
  4. B COMPLEX                          /00212701/ [Concomitant]
     Indication: COMPLEX REGIONAL PAIN SYNDROME

REACTIONS (5)
  - Haemorrhoidal haemorrhage [Recovering/Resolving]
  - Sinusitis [Unknown]
  - Eye swelling [Unknown]
  - Pain in extremity [Unknown]
  - Headache [Not Recovered/Not Resolved]
